FAERS Safety Report 17727394 (Version 1)
Quarter: 2020Q2

REPORT INFORMATION
  Report Type: Spontaneous
  Country: DE (occurrence: DE)
  Receive Date: 20200430
  Receipt Date: 20200430
  Transmission Date: 20200714
  Serious: Yes (Disabling, Other)
  Sender: FDA-Public Use
  Company Number: DE-AMGEN-DEUSP2020068748

PATIENT
  Age: 74 Year
  Sex: Female
  Weight: 50 kg

DRUGS (1)
  1. ENBREL [Suspect]
     Active Substance: ETANERCEPT
     Indication: PRODUCT USED FOR UNKNOWN INDICATION
     Dosage: 50 MG 1X/WEEK
     Route: 058
     Dates: start: 2005

REACTIONS (2)
  - Metastases to central nervous system [Recovered/Resolved with Sequelae]
  - Bronchial carcinoma [Recovered/Resolved with Sequelae]

NARRATIVE: CASE EVENT DATE: 202003
